FAERS Safety Report 10255801 (Version 1)
Quarter: 2014Q2

REPORT INFORMATION
  Report Type: Report from Study
  Country: JP (occurrence: JP)
  Receive Date: 20140624
  Receipt Date: 20140624
  Transmission Date: 20141212
  Serious: Yes (Hospitalization)
  Sender: FDA-Public Use
  Company Number: JP-BAYER-2014-090784

PATIENT
  Age: 68 Year
  Sex: Female
  Weight: 52 kg

DRUGS (10)
  1. STIVARGA [Suspect]
     Indication: COLON CANCER
     Dosage: ONE CYCLE IS 120 MG/DAY ON FOR 14 DAYS
     Route: 048
     Dates: start: 20140311, end: 20140325
  2. UREPEARL [Concomitant]
     Indication: DRUG TOXICITY PROPHYLAXIS
     Dosage: UNK
     Route: 061
     Dates: start: 20140311, end: 20140318
  3. HIRUDOID [Concomitant]
     Indication: DRUG TOXICITY PROPHYLAXIS
     Dosage: UNK
     Route: 061
     Dates: start: 20140318, end: 20140325
  4. HIRUDOID [Concomitant]
     Indication: PALMAR-PLANTAR ERYTHRODYSAESTHESIA SYNDROME
  5. ANTEBATE [Concomitant]
     Indication: PALMAR-PLANTAR ERYTHRODYSAESTHESIA SYNDROME
     Dosage: UNK
     Route: 061
     Dates: start: 20140325
  6. ANTEBATE [Concomitant]
     Indication: COLON CANCER
  7. LOCOID [Concomitant]
     Indication: PALMAR-PLANTAR ERYTHRODYSAESTHESIA SYNDROME
     Dosage: UNK
     Route: 061
     Dates: start: 20140325
  8. LOCOID [Concomitant]
     Indication: COLON CANCER
  9. CYMBALTA [Concomitant]
     Dosage: DAILY DOSE 40 MG
     Route: 048
  10. SEPAZON [Concomitant]
     Dosage: DAILY DOSE 1 MG
     Route: 048

REACTIONS (3)
  - Drug eruption [Recovered/Resolved]
  - Hypertension [Recovered/Resolved]
  - Palmar-plantar erythrodysaesthesia syndrome [Recovered/Resolved]
